FAERS Safety Report 24047525 (Version 1)
Quarter: 2024Q3

REPORT INFORMATION
  Report Type: Spontaneous
  Country: US (occurrence: US)
  Receive Date: 20240703
  Receipt Date: 20240703
  Transmission Date: 20241016
  Serious: No
  Sender: SCIEGEN
  Company Number: US-SCIEGENP-2024SCSPO00307

PATIENT
  Sex: Female

DRUGS (1)
  1. BUPROPION HYDROCHLORIDE [Suspect]
     Active Substance: BUPROPION HYDROCHLORIDE
     Indication: Depression
     Dates: start: 20240327, end: 20240524

REACTIONS (2)
  - Drug ineffective [Unknown]
  - Product odour abnormal [Unknown]
